FAERS Safety Report 13697164 (Version 3)
Quarter: 2018Q4

REPORT INFORMATION
  Report Type: Report from Study
  Country: None (occurrence: US)
  Receive Date: 20170628
  Receipt Date: 20181010
  Transmission Date: 20190204
  Serious: Yes (Other)
  Sender: FDA-Public Use
  Company Number: US-ABBVIE-17K-163-2018752-00

PATIENT
  Sex: Female

DRUGS (1)
  1. HUMIRA [Suspect]
     Active Substance: ADALIMUMAB
     Indication: PSORIASIS
     Route: 058
     Dates: end: 201806

REACTIONS (6)
  - Coagulopathy [Unknown]
  - Idiopathic intracranial hypertension [Unknown]
  - Staphylococcal infection [Unknown]
  - Venous stenosis [Unknown]
  - Cerebral thrombosis [Unknown]
  - Visual impairment [Unknown]
